FAERS Safety Report 11595518 (Version 1)
Quarter: 2015Q4

REPORT INFORMATION
  Report Type: Spontaneous
  Country: US (occurrence: None)
  Receive Date: 20151005
  Receipt Date: 20151005
  Transmission Date: 20160304
  Serious: No
  Sender: FDA-Public Use
  Company Number: None

PATIENT
  Age: 15 Year
  Sex: Male
  Weight: 26.76 kg

DRUGS (3)
  1. GUANFACINE ER 4 MG ACTAVIS PHARMACEUTICAL [Suspect]
     Active Substance: GUANFACINE
     Indication: ATTENTION DEFICIT/HYPERACTIVITY DISORDER
     Route: 048
     Dates: start: 20150909
  2. GUANFACINE. [Concomitant]
     Active Substance: GUANFACINE
  3. INTUNIV [Concomitant]
     Active Substance: GUANFACINE HYDROCHLORIDE

REACTIONS (3)
  - Product substitution issue [None]
  - Oppositional defiant disorder [None]
  - Drug ineffective [None]

NARRATIVE: CASE EVENT DATE: 20150909
